FAERS Safety Report 9620867 (Version 2)
Quarter: 2013Q4

REPORT INFORMATION
  Report Type: Spontaneous
  Country: TR (occurrence: TR)
  Receive Date: 20131015
  Receipt Date: 20131022
  Transmission Date: 20140711
  Serious: Yes (Life-Threatening, Hospitalization, Other)
  Sender: FDA-Public Use
  Company Number: TR-JNJFOC-20131006786

PATIENT
  Age: 55 Year
  Sex: Male

DRUGS (1)
  1. PSEUDOEPHEDRINE HYDROCHLORIDE [Suspect]
     Indication: NASOPHARYNGITIS
     Route: 065

REACTIONS (7)
  - Ventricular tachycardia [Recovered/Resolved]
  - Dyspnoea [Recovered/Resolved]
  - Left ventricular dysfunction [Recovered/Resolved]
  - Mitral valve incompetence [Recovered/Resolved]
  - Respiratory rate increased [Recovered/Resolved]
  - Blood pH increased [Recovered/Resolved]
  - Palpitations [Recovered/Resolved]
